FAERS Safety Report 12578355 (Version 1)
Quarter: 2016Q3

REPORT INFORMATION
  Report Type: Spontaneous
  Country: US (occurrence: US)
  Receive Date: 20160721
  Receipt Date: 20160721
  Transmission Date: 20161109
  Serious: Yes (Other)
  Sender: FDA-Public Use
  Company Number: US-009507513-1607USA006993

PATIENT
  Age: 35 Year
  Sex: Female

DRUGS (1)
  1. REBETOL [Suspect]
     Active Substance: RIBAVIRIN
     Dosage: UNK
     Dates: start: 20160224

REACTIONS (2)
  - Exposure via body fluid [Recovered/Resolved]
  - Blighted ovum [Unknown]

NARRATIVE: CASE EVENT DATE: 2016
